FAERS Safety Report 20377233 (Version 1)
Quarter: 2022Q1

REPORT INFORMATION
  Report Type: Other
  Country: US (occurrence: None)
  Receive Date: 20220126
  Receipt Date: 20220126
  Transmission Date: 20220424
  Serious: Yes (Hospitalization)
  Sender: FDA-Public Use
  Company Number: US-ROCHE-3005008

PATIENT
  Sex: Female

DRUGS (1)
  1. CELLCEPT [Suspect]
     Active Substance: MYCOPHENOLATE MOFETIL
     Indication: Renal transplant
     Dosage: TAKE 3 CAPS BID
     Route: 065

REACTIONS (4)
  - COVID-19 [Unknown]
  - Pneumonia [Unknown]
  - Renal impairment [Unknown]
  - Off label use [Unknown]
